FAERS Safety Report 24806652 (Version 1)
Quarter: 2025Q1

REPORT INFORMATION
  Report Type: Spontaneous
  Country: ES (occurrence: ES)
  Receive Date: 20250104
  Receipt Date: 20250104
  Transmission Date: 20250409
  Serious: Yes (Other)
  Sender: AUROBINDO
  Company Number: ES-ELI_LILLY_AND_COMPANY-ES202402016886

PATIENT
  Age: 53 Year
  Sex: Female

DRUGS (7)
  1. ACETAMINOPHEN [Suspect]
     Active Substance: ACETAMINOPHEN
     Indication: Product used for unknown indication
     Route: 065
  2. IBUPROFEN [Suspect]
     Active Substance: IBUPROFEN
     Indication: Breast discomfort
     Route: 065
  3. ABEMACICLIB [Suspect]
     Active Substance: ABEMACICLIB
     Indication: Breast cancer
     Route: 048
     Dates: start: 20240216
  4. ABEMACICLIB [Suspect]
     Active Substance: ABEMACICLIB
     Route: 048
  5. ABEMACICLIB [Suspect]
     Active Substance: ABEMACICLIB
     Route: 048
  6. ABEMACICLIB [Suspect]
     Active Substance: ABEMACICLIB
     Dosage: 300 MILLIGRAM, ONCE A DAY
     Route: 048
  7. OMEPRAZOLE [Concomitant]
     Active Substance: OMEPRAZOLE
     Indication: Product used for unknown indication
     Route: 065

REACTIONS (33)
  - Pneumonitis [Recovering/Resolving]
  - Nausea [Recovering/Resolving]
  - Insomnia [Recovering/Resolving]
  - Breast discomfort [Recovering/Resolving]
  - Abdominal pain [Recovered/Resolved]
  - Fatigue [Recovering/Resolving]
  - Muscle spasms [Recovering/Resolving]
  - Diarrhoea [Recovering/Resolving]
  - Abdominal pain upper [Recovering/Resolving]
  - Constipation [Recovering/Resolving]
  - Taste disorder [Recovering/Resolving]
  - Anaemia [Recovering/Resolving]
  - Pruritus [Recovering/Resolving]
  - Feeling hot [Recovering/Resolving]
  - Erythema [Recovering/Resolving]
  - Oral pain [Recovering/Resolving]
  - Dry skin [Recovering/Resolving]
  - Pain [Recovering/Resolving]
  - Breast complication associated with device [Recovered/Resolved]
  - Stomatitis [Recovered/Resolved]
  - Secretion discharge [Recovering/Resolving]
  - COVID-19 [Recovering/Resolving]
  - Feeling abnormal [Recovering/Resolving]
  - Lacrimation increased [Recovering/Resolving]
  - Hair disorder [Recovering/Resolving]
  - Incision site impaired healing [Recovering/Resolving]
  - Urticaria [Recovering/Resolving]
  - Nail ridging [Recovering/Resolving]
  - Eczema [Recovering/Resolving]
  - Alopecia [Recovering/Resolving]
  - Tachycardia [Recovering/Resolving]
  - Tendonitis [Recovering/Resolving]
  - Agitation [Recovering/Resolving]

NARRATIVE: CASE EVENT DATE: 20240315
